FAERS Safety Report 5226074-6 (Version None)
Quarter: 2007Q1

REPORT INFORMATION
  Report Type: 
  Country: None (occurrence: None)
  Receive Date: 20070201
  Receipt Date: 20070119
  Transmission Date: 20070707
  Serious: Yes (Hospitalization)
  Sender: FDA-Public Use
  Company Number: HQWYE254123JAN07

PATIENT
  Sex: Female
  Weight: 64 kg

DRUGS (6)
  1. ENBREL [Suspect]
     Indication: RHEUMATOID ARTHRITIS
     Route: 058
     Dates: start: 20051209, end: 20060922
  2. AZULFIDINE [Concomitant]
     Indication: RHEUMATOID ARTHRITIS
     Route: 048
     Dates: start: 20040428, end: 20040514
  3. AZULFIDINE [Concomitant]
     Route: 048
     Dates: start: 20040515, end: 20051028
  4. AZULFIDINE [Concomitant]
     Route: 048
     Dates: start: 20051029
  5. GASTER [Concomitant]
     Indication: PROPHYLAXIS AGAINST GASTROINTESTINAL ULCER
     Route: 048
     Dates: start: 20060210
  6. ALFACALCIDOL [Concomitant]
     Indication: OSTEOPOROSIS PROPHYLAXIS
     Route: 048
     Dates: start: 20041224

REACTIONS (2)
  - CONDITION AGGRAVATED [None]
  - HILAR LYMPHADENOPATHY [None]
